FAERS Safety Report 13246679 (Version 34)
Quarter: 2025Q1

REPORT INFORMATION
  Report Type: Report from Study
  Country: GB (occurrence: GB)
  Receive Date: 20170217
  Receipt Date: 20250107
  Transmission Date: 20250409
  Serious: Yes (Hospitalization, Other)
  Sender: ACCORD
  Company Number: None

PATIENT
  Age: 55 Year
  Sex: Male

DRUGS (36)
  1. FUROSEMIDE [Interacting]
     Active Substance: FUROSEMIDE
     Indication: Left ventricular dysfunction
     Dates: start: 20160402
  2. RAMIPRIL [Interacting]
     Active Substance: RAMIPRIL
     Indication: Cardiac failure
     Route: 048
     Dates: start: 20130813, end: 20160629
  3. QUETIAPINE FUMARATE [Interacting]
     Active Substance: QUETIAPINE FUMARATE
     Indication: Depression
     Route: 048
     Dates: start: 20150826
  4. ISOSORBIDE MONONITRATE [Interacting]
     Active Substance: ISOSORBIDE MONONITRATE
     Indication: Angina pectoris
     Dosage: ORAL FORMULATION: DURULE
     Route: 048
     Dates: start: 20160205
  5. OMEPRAZOLE [Interacting]
     Active Substance: OMEPRAZOLE
     Indication: Dyspepsia
     Route: 048
     Dates: start: 20140116
  6. CARVEDILOL [Suspect]
     Active Substance: CARVEDILOL
     Indication: Angina pectoris
     Dosage: DOSAGE TEXT: NUMBER OF SEPARATE DOSES: 2
     Dates: start: 20110616
  7. CARVEDILOL [Interacting]
     Active Substance: CARVEDILOL
     Indication: Angina pectoris
     Dosage: 25 MG, QD, ALSO RECEIVED 50 MG
     Dates: start: 20110616
  8. IVABRADINE HYDROCHLORIDE [Interacting]
     Active Substance: IVABRADINE HYDROCHLORIDE
     Indication: Angina pectoris
     Dosage: ALSO RECEIVED 10 MG
     Dates: start: 20150211
  9. BOCOCIZUMAB [Interacting]
     Active Substance: BOCOCIZUMAB
     Indication: Cardiovascular disorder
     Dosage: EVERY 2 WEEKS
     Route: 058
     Dates: start: 20150908, end: 20161101
  10. ASPIRIN [Concomitant]
     Active Substance: ASPIRIN
     Indication: Cardiovascular disorder
     Dates: start: 20130708
  11. ATORVASTATIN [Concomitant]
     Active Substance: ATORVASTATIN
     Indication: Cardiovascular disorder
     Dates: start: 20130708
  12. BETAMETHASONE DIPROPIONATE\CLOTRIMAZOLE [Concomitant]
     Active Substance: BETAMETHASONE DIPROPIONATE\CLOTRIMAZOLE
     Indication: Psoriasis
     Dates: start: 20150626
  13. SACUBITRIL\VALSARTAN [Concomitant]
     Active Substance: SACUBITRIL\VALSARTAN
     Indication: Left ventricular dysfunction
     Route: 048
     Dates: start: 20160701
  14. FOLIC ACID [Concomitant]
     Active Substance: FOLIC ACID
     Indication: Anaemia
     Dates: start: 20131211
  15. NITROGLYCERIN [Concomitant]
     Active Substance: NITROGLYCERIN
     Indication: Cardiovascular disorder
     Dates: start: 20130902
  16. ACETAMINOPHEN\CODEINE PHOSPHATE [Concomitant]
     Active Substance: ACETAMINOPHEN\CODEINE PHOSPHATE
     Indication: Pain in extremity
     Dates: start: 20110616
  17. METHOTREXATE [Concomitant]
     Active Substance: METHOTREXATE
     Indication: Psoriasis
     Dates: start: 20150727
  18. SERTRALINE HYDROCHLORIDE [Concomitant]
     Active Substance: SERTRALINE HYDROCHLORIDE
     Indication: Depression
     Dates: start: 20110816
  19. CODEINE PHOSPHATE [Concomitant]
     Active Substance: CODEINE PHOSPHATE
  20. ACETAMINOPHEN [Concomitant]
     Active Substance: ACETAMINOPHEN
     Indication: Pain in extremity
     Dates: start: 20110616
  21. OMEPRAZOLE [Concomitant]
     Active Substance: OMEPRAZOLE
     Indication: Dyspepsia
     Dates: start: 20140116
  22. QUETIAPINE FUMARATE [Concomitant]
     Active Substance: QUETIAPINE FUMARATE
     Indication: Depression
     Route: 048
     Dates: start: 20150826
  23. SACUBITRIL [Concomitant]
     Active Substance: SACUBITRIL
     Indication: Left ventricular dysfunction
     Dates: start: 20160701
  24. BOCOCIZUMAB [Concomitant]
     Active Substance: BOCOCIZUMAB
     Indication: Cardiovascular disorder
     Route: 058
     Dates: start: 20110616
  25. SERTRALINE HYDROCHLORIDE [Concomitant]
     Active Substance: SERTRALINE HYDROCHLORIDE
     Indication: Ventricular dysfunction
     Route: 065
     Dates: start: 20160701
  26. SACUBITRIL [Concomitant]
     Active Substance: SACUBITRIL
     Indication: Left ventricular dysfunction
     Dates: start: 20160601
  27. BOCOCIZUMAB [Concomitant]
     Active Substance: BOCOCIZUMAB
     Indication: Cardiovascular disorder
     Dosage: 150 MILLIGRAM, BIWEEKLY, FREQUENCY- EVERY 2 WEEKS
     Route: 058
     Dates: start: 20150908, end: 20161101
  28. BOCOCIZUMAB [Interacting]
     Active Substance: BOCOCIZUMAB
     Indication: Cardiovascular disorder
     Dosage: EVERY 2 WEEKS
     Route: 058
     Dates: start: 20110616
  29. FUROSEMIDE [Interacting]
     Active Substance: FUROSEMIDE
     Indication: Pulmonary oedema
     Dosage: 80 MG, QD
     Route: 048
     Dates: start: 20160402
  30. RAMIPRIL [Interacting]
     Active Substance: RAMIPRIL
     Indication: Cardiac failure
     Route: 048
     Dates: start: 20130813, end: 20160629
  31. OMEPRAZOLE [Interacting]
     Active Substance: OMEPRAZOLE
     Indication: Dyspepsia
     Route: 048
     Dates: start: 20110616
  32. IVABRADINE HYDROCHLORIDE [Interacting]
     Active Substance: IVABRADINE HYDROCHLORIDE
     Indication: Angina pectoris
     Dosage: 5 MG, BID, 12 HOURLY
     Dates: start: 20150211
  33. ACETAMINOPHEN [Concomitant]
     Active Substance: ACETAMINOPHEN
     Indication: Pain in extremity
     Dates: start: 20160616
  34. SACUBITRIL\VALSARTAN [Concomitant]
     Active Substance: SACUBITRIL\VALSARTAN
     Indication: Left ventricular dysfunction
     Dates: start: 20160601
  35. BOCOCIZUMAB [Interacting]
     Active Substance: BOCOCIZUMAB
     Indication: Cardiovascular disorder
     Dosage: 25 MG,  BID
     Route: 058
     Dates: start: 20110616
  36. RAMIPRIL [Interacting]
     Active Substance: RAMIPRIL
     Indication: Cardiac failure
     Dosage: 1 MG, QD
     Route: 048
     Dates: start: 20130813, end: 20160629

REACTIONS (14)
  - Fluid retention [Not Recovered/Not Resolved]
  - Psoriasis [Unknown]
  - Anaemia [Unknown]
  - Presyncope [Unknown]
  - Contusion [Recovered/Resolved]
  - Hypotension [Recovered/Resolved]
  - Angina pectoris [Unknown]
  - Cardiac failure [Unknown]
  - Ventricular dysfunction [Unknown]
  - Condition aggravated [Unknown]
  - Oedema peripheral [Not Recovered/Not Resolved]
  - Drug interaction [Recovered/Resolved]
  - Off label use [Unknown]
  - Pulmonary oedema [Unknown]

NARRATIVE: CASE EVENT DATE: 20130919
